FAERS Safety Report 7560096-5 (Version None)
Quarter: 2011Q2

REPORT INFORMATION
  Report Type: 
  Country: None (occurrence: None)
  Receive Date: 20110621
  Receipt Date: 20110602
  Transmission Date: 20111010
  Serious: Yes (Other)
  Sender: FDA-Public Use
  Company Number: A0807697A

PATIENT
  Age: 58 Year
  Sex: Male
  Weight: 94.1 kg

DRUGS (9)
  1. LISINOPRIL [Concomitant]
  2. AVANDIA [Suspect]
     Dosage: 8MG PER DAY
     Route: 048
     Dates: start: 20050101, end: 20070801
  3. PROPRANOLOL [Concomitant]
  4. GLUCOVANCE [Concomitant]
  5. METFORMIN HCL [Concomitant]
  6. AVANDAMET [Suspect]
     Route: 048
  7. LOVASTATIN [Concomitant]
  8. GLIMEPIRIDE [Concomitant]
  9. LIPITOR [Concomitant]

REACTIONS (4)
  - VITH NERVE PARALYSIS [None]
  - CEREBROVASCULAR ACCIDENT [None]
  - VIITH NERVE PARALYSIS [None]
  - DIABETIC VASCULAR DISORDER [None]
